FAERS Safety Report 20630188 (Version 1)
Quarter: 2022Q1

REPORT INFORMATION
  Report Type: Spontaneous
  Country: JP (occurrence: JP)
  Receive Date: 20220324
  Receipt Date: 20220324
  Transmission Date: 20220423
  Serious: Yes (Hospitalization)
  Sender: FDA-Public Use
  Company Number: JP-NOVARTISPH-NVSJ2022JP003607

PATIENT
  Age: 92 Year
  Sex: Female

DRUGS (1)
  1. EXELON PATCH [Suspect]
     Active Substance: RIVASTIGMINE
     Indication: Dementia Alzheimer^s type
     Dosage: PATCH2.5(CM2), CUT THE PATCH10(CM2) INTO 1/4 FOR USE
     Route: 062

REACTIONS (3)
  - Pneumonia [Recovered/Resolved]
  - Nasopharyngitis [Unknown]
  - Wrong technique in product usage process [Unknown]
